FAERS Safety Report 7119113-9 (Version None)
Quarter: 2010Q4

REPORT INFORMATION
  Report Type: 
  Country: None (occurrence: None)
  Receive Date: 20101123
  Receipt Date: 20101108
  Transmission Date: 20110411
  Serious: Yes (Death, Other)
  Sender: FDA-Public Use
  Company Number: US-ROCHE-740468

PATIENT

DRUGS (1)
  1. TAMIFLU [Suspect]
     Route: 064

REACTIONS (2)
  - CARDIOMYOPATHY [None]
  - COMA [None]
